FAERS Safety Report 17469027 (Version 1)
Quarter: 2020Q1

REPORT INFORMATION
  Report Type: Spontaneous
  Country: US (occurrence: US)
  Receive Date: 20200227
  Receipt Date: 20200227
  Transmission Date: 20200409
  Serious: Yes (Life-Threatening, Other)
  Sender: FDA-Public Use
  Company Number: None

PATIENT
  Age: 80 Year
  Sex: Male
  Weight: 88 kg

DRUGS (1)
  1. ANDEXXA [Suspect]
     Active Substance: ANDEXANET ALFA
     Indication: FACTOR X INHIBITION
     Dosage: ?          OTHER FREQUENCY:INFUSED OVER 15MIN;?
     Route: 040
     Dates: start: 20200222, end: 20200222

REACTIONS (11)
  - Oxygen saturation decreased [None]
  - Airway complication of anaesthesia [None]
  - Blood pressure decreased [None]
  - Tachypnoea [None]
  - Tidal volume decreased [None]
  - Anaphylactic reaction [None]
  - Unresponsive to stimuli [None]
  - Dyspnoea [None]
  - Incarcerated inguinal hernia [None]
  - Pulmonary embolism [None]
  - Mental status changes [None]

NARRATIVE: CASE EVENT DATE: 20200222
